FAERS Safety Report 5316876-X (Version None)
Quarter: 2007Q2

REPORT INFORMATION
  Report Type: 
  Country: None (occurrence: None)
  Receive Date: 20070501
  Receipt Date: 20070501
  Transmission Date: 20071010
  Serious: No
  Sender: FDA-Public Use
  Company Number: None

PATIENT
  Age: 44 Year
  Sex: Male
  Weight: 115.6672 kg

DRUGS (3)
  1. CARBAMAZEPINE [Suspect]
     Indication: CONVULSION
     Dosage: 600 MG  BID
     Dates: start: 20070404, end: 20070406
  2. VALPROIC ACID [Suspect]
     Indication: CONVULSION
     Dosage: 1500  MG   BID
     Dates: start: 20060124, end: 20070406
  3. SIMVASTATIN [Concomitant]

REACTIONS (8)
  - CONFUSIONAL STATE [None]
  - CONVULSION [None]
  - DISORIENTATION [None]
  - DRUG INTERACTION [None]
  - DRUG TOXICITY [None]
  - INCORRECT DOSE ADMINISTERED [None]
  - MENTAL STATUS CHANGES [None]
  - STARING [None]
